FAERS Safety Report 5795505-5 (Version None)
Quarter: 2008Q2

REPORT INFORMATION
  Report Type: 
  Country: None (occurrence: None)
  Receive Date: 20080630
  Receipt Date: 20080617
  Transmission Date: 20081010
  Serious: Yes (Other)
  Sender: FDA-Public Use
  Company Number: PHHY2008JP10316

PATIENT
  Age: 59 Year
  Sex: Female

DRUGS (2)
  1. ZOMETA [Suspect]
     Indication: METASTASES TO BONE
     Dosage: UNK
     Route: 042
     Dates: start: 20060901
  2. ALENDRONATE SODIUM [Suspect]
     Dosage: UNK
     Dates: start: 20060301

REACTIONS (3)
  - OSTEOMYELITIS [None]
  - SEQUESTRECTOMY [None]
  - TOOTHACHE [None]
